FAERS Safety Report 9826997 (Version 1)
Quarter: 2014Q1

REPORT INFORMATION
  Report Type: Spontaneous
  Country: US (occurrence: US)
  Receive Date: 20140117
  Receipt Date: 20140117
  Transmission Date: 20141002
  Serious: No
  Sender: FDA-Public Use
  Company Number: US-GLAXOSMITHKLINE-A1024419A

PATIENT
  Age: 58 Year
  Sex: Female

DRUGS (10)
  1. PROMACTA [Suspect]
     Indication: HEPATITIS C
     Dosage: 25MG PER DAY
     Dates: start: 201303
  2. CIPRO [Concomitant]
  3. PROCRIT [Concomitant]
  4. NEUPOGEN [Concomitant]
  5. ATARAX [Concomitant]
  6. CLARITIN [Concomitant]
  7. ZOFRAN [Concomitant]
  8. INTERFERON [Concomitant]
  9. RIBAVIRIN [Concomitant]
  10. ZOLOFT [Concomitant]

REACTIONS (2)
  - Abdominal pain upper [Unknown]
  - Nausea [Unknown]
